FAERS Safety Report 25764799 (Version 4)
Quarter: 2025Q4

REPORT INFORMATION
  Report Type: Spontaneous
  Country: AU (occurrence: AU)
  Receive Date: 20250905
  Receipt Date: 20251212
  Transmission Date: 20260117
  Serious: Yes (Hospitalization, Disabling, Other)
  Sender: JOHNSON AND JOHNSON
  Company Number: AU-JNJFOC-20250900517

PATIENT
  Sex: Female

DRUGS (12)
  1. INVEGA [Suspect]
     Active Substance: PALIPERIDONE
     Indication: Product used for unknown indication
     Route: 030
     Dates: start: 2021
  2. INVEGA [Suspect]
     Active Substance: PALIPERIDONE
     Route: 030
     Dates: start: 2023
  3. INVEGA [Suspect]
     Active Substance: PALIPERIDONE
     Route: 030
     Dates: start: 2024, end: 20250509
  4. INVEGA [Suspect]
     Active Substance: PALIPERIDONE
     Route: 030
  5. INVEGA [Suspect]
     Active Substance: PALIPERIDONE
     Route: 030
  6. ARIPIPRAZOLE [Suspect]
     Active Substance: ARIPIPRAZOLE
     Indication: Hyperprolactinaemia
     Route: 048
  7. ARIPIPRAZOLE [Suspect]
     Active Substance: ARIPIPRAZOLE
     Route: 048
     Dates: start: 2021
  8. ARIPIPRAZOLE [Suspect]
     Active Substance: ARIPIPRAZOLE
     Route: 030
  9. MIRTAZAPINE [Suspect]
     Active Substance: MIRTAZAPINE
     Indication: Product used for unknown indication
  10. MIRTAZAPINE [Suspect]
     Active Substance: MIRTAZAPINE
  11. MIRTAZAPINE [Suspect]
     Active Substance: MIRTAZAPINE
  12. QUETIAPINE FUMARATE [Suspect]
     Active Substance: QUETIAPINE FUMARATE
     Indication: Product used for unknown indication

REACTIONS (4)
  - Parkinson^s disease [Unknown]
  - Schizoaffective disorder [Unknown]
  - Depressive symptom [Unknown]
  - Extrapyramidal disorder [Unknown]

NARRATIVE: CASE EVENT DATE: 20210101
